FAERS Safety Report 14339070 (Version 1)
Quarter: 2017Q4

REPORT INFORMATION
  Report Type: Spontaneous
  Country: FR (occurrence: FR)
  Receive Date: 20171230
  Receipt Date: 20171230
  Transmission Date: 20180321
  Serious: Yes (Hospitalization)
  Sender: FDA-Public Use
  Company Number: FR-MERCK KGAA-2038042

PATIENT
  Age: 71 Year
  Sex: Female

DRUGS (10)
  1. CRESTOR [Concomitant]
     Active Substance: ROSUVASTATIN CALCIUM
  2. ALPRAZOLAM. [Concomitant]
     Active Substance: ALPRAZOLAM
  3. LEVOTHYROXINE SODIUM. [Suspect]
     Active Substance: LEVOTHYROXINE SODIUM
     Dates: start: 201704, end: 201712
  4. VITAMIN D [Concomitant]
     Active Substance: CHOLECALCIFEROL
  5. AVLOCARDYL [Concomitant]
     Active Substance: PROPRANOLOL HYDROCHLORIDE
  6. INEXIUM [Concomitant]
     Active Substance: ESOMEPRAZOLE
  7. ALPHA [Concomitant]
     Active Substance: ACETAMINOPHEN\CAFFEINE\PROPYPHENAZONE
  8. FLECAINE [Concomitant]
     Active Substance: FLECAINIDE
  9. NOVOTHYROX [Suspect]
     Active Substance: LEVOTHYROXINE SODIUM
     Indication: PRODUCT USED FOR UNKNOWN INDICATION
     Dates: start: 201704, end: 201712
  10. CALCIUM [Concomitant]
     Active Substance: CALCIUM

REACTIONS (6)
  - Fatigue [None]
  - Tachycardia [None]
  - Confusional state [None]
  - Headache [None]
  - Angina pectoris [None]
  - Pain [None]

NARRATIVE: CASE EVENT DATE: 2017
